FAERS Safety Report 5630940-7 (Version None)
Quarter: 2008Q1

REPORT INFORMATION
  Report Type: 
  Country: None (occurrence: None)
  Receive Date: 20080219
  Receipt Date: 20080213
  Transmission Date: 20080703
  Serious: Yes (Life-Threatening)
  Sender: FDA-Public Use
  Company Number: FR-AVENTIS-200810753EU

PATIENT
  Age: 78 Year
  Sex: Female
  Weight: 46 kg

DRUGS (8)
  1. NATRIX [Suspect]
     Indication: HYPERTENSION
     Route: 048
     Dates: start: 20070201, end: 20070904
  2. SHAKUYAKUKANZOUTOU [Suspect]
     Indication: HYPOAESTHESIA
     Dosage: DOSE: 1 DF
     Route: 048
     Dates: start: 20070202, end: 20070904
  3. AMLODIPINE [Concomitant]
  4. NU-LOTAN [Concomitant]
  5. LANZOR [Concomitant]
  6. ASPIRIN [Concomitant]
  7. METHYCOBAL                         /00056201/ [Concomitant]
  8. SELBEX [Concomitant]

REACTIONS (2)
  - HYPOKALAEMIA [None]
  - VENTRICULAR FIBRILLATION [None]
